FAERS Safety Report 10171398 (Version 1)
Quarter: 2014Q2

REPORT INFORMATION
  Report Type: Spontaneous
  Country: US (occurrence: None)
  Receive Date: 20140425
  Receipt Date: 20140425
  Transmission Date: 20141212
  Serious: No
  Sender: FDA-Public Use
  Company Number: 2013SGN00775

PATIENT
  Age: 88 Year
  Sex: Male

DRUGS (1)
  1. ADCETRIS [Suspect]
     Indication: T-CELL LYMPHOMA

REACTIONS (3)
  - Weight decreased [None]
  - Off label use [None]
  - Fatigue [None]
